FAERS Safety Report 4967087-9 (Version None)
Quarter: 2006Q2

REPORT INFORMATION
  Report Type: 
  Country: None (occurrence: None)
  Receive Date: 20060410
  Receipt Date: 20060328
  Transmission Date: 20061013
  Serious: Yes (Hospitalization)
  Sender: FDA-Public Use
  Company Number: PHHO2006GB05141

PATIENT
  Age: 29 Year
  Sex: Female

DRUGS (6)
  1. SYNTOCINON [Suspect]
     Indication: LABOUR INDUCTION
     Dosage: 10 IU, ONCE/SINGLE
     Dates: start: 20060325, end: 20060325
  2. MISOPROSTOL [Concomitant]
     Indication: LABOUR INDUCTION
     Dosage: 50 UG, ONCE/SINGLE
     Route: 067
     Dates: start: 20060323, end: 20060323
  3. MISOPROSTOL [Concomitant]
     Dosage: 25 UG, ONCE/SINGLE
     Route: 067
     Dates: start: 20060323, end: 20060323
  4. MISOPROSTOL [Concomitant]
     Dosage: 25 UG, ONCE/SINGLE
     Route: 067
     Dates: start: 20060323, end: 20060323
  5. PROSTINE [Concomitant]
     Dosage: 1 MG, UNK
     Route: 067
     Dates: start: 20060324, end: 20060324
  6. PROSTINE [Concomitant]
     Dosage: 2 MG, UNK
     Dates: start: 20060325, end: 20060325

REACTIONS (4)
  - ARTIFICIAL RUPTURE OF MEMBRANES [None]
  - CAESAREAN SECTION [None]
  - DRUG EXPOSURE DURING PREGNANCY [None]
  - PYREXIA [None]
